FAERS Safety Report 19711732 (Version 1)
Quarter: 2021Q3

REPORT INFORMATION
  Report Type: Report from Study
  Country: US (occurrence: US)
  Receive Date: 20210816
  Receipt Date: 20210816
  Transmission Date: 20211014
  Serious: Yes (Hospitalization, Other)
  Sender: FDA-Public Use
  Company Number: US-TAKEDA-US202026075

PATIENT
  Age: 42 Year
  Sex: Female
  Weight: 41 kg

DRUGS (12)
  1. PROTOPIC [Concomitant]
     Active Substance: TACROLIMUS
     Indication: DERMATITIS
     Dosage: 1 UNK, PRN
     Route: 061
     Dates: start: 20180823
  2. TEDUGLUTIDE [Suspect]
     Active Substance: TEDUGLUTIDE
     Indication: SHORT-BOWEL SYNDROME
     Dosage: 2.1 MILLIGRAM (DAILY DOSE: 0.05 MILLIGRAM/KILOGRAM), 1X/WEEK
     Route: 065
     Dates: start: 20141014
  3. TEDUGLUTIDE [Suspect]
     Active Substance: TEDUGLUTIDE
     Indication: SHORT-BOWEL SYNDROME
     Dosage: 2.1 MILLIGRAM (DAILY DOSE: 0.05 MILLIGRAM/KILOGRAM), 1X/WEEK
     Route: 065
     Dates: start: 20141014
  4. TEDUGLUTIDE [Suspect]
     Active Substance: TEDUGLUTIDE
     Dosage: 2.1 MILLIGRAM (DAILY DOSE: 0.05 MILLIGRAM/KILOGRAM), QD
     Route: 065
     Dates: start: 20201002
  5. DIPHENHYDRAMINE HCL [Concomitant]
     Active Substance: DIPHENHYDRAMINE HYDROCHLORIDE
     Indication: SWELLING FACE
     Dosage: 25 MILLIGRAM, PRN
     Route: 048
     Dates: start: 20180523, end: 20180831
  6. DIPHENHYDRAMINE. [Concomitant]
     Active Substance: DIPHENHYDRAMINE
     Indication: ANGIOEDEMA
     Dosage: 25 MILLIGRAM, QID
     Route: 048
     Dates: start: 20191120, end: 20191120
  7. TEDUGLUTIDE [Suspect]
     Active Substance: TEDUGLUTIDE
     Dosage: 2.1 MILLIGRAM (DAILY DOSE: 0.05 MILLIGRAM/KILOGRAM), QD
     Route: 065
     Dates: start: 20201002
  8. TEDUGLUTIDE [Suspect]
     Active Substance: TEDUGLUTIDE
     Dosage: 2.1 MILLIGRAM (DAILY DOSE: 0.05 MILLIGRAM/KILOGRAM), QD
     Route: 065
     Dates: start: 20201002
  9. PREDNISONE. [Concomitant]
     Active Substance: PREDNISONE
     Indication: ANGIOEDEMA
     Dosage: 20 MILLIGRAM, QD
     Route: 048
     Dates: start: 20191120, end: 20191120
  10. TEDUGLUTIDE [Suspect]
     Active Substance: TEDUGLUTIDE
     Indication: SHORT-BOWEL SYNDROME
     Dosage: 2.1 MILLIGRAM (DAILY DOSE: 0.05 MILLIGRAM/KILOGRAM), 1X/WEEK
     Route: 065
     Dates: start: 20141014
  11. TEDUGLUTIDE [Suspect]
     Active Substance: TEDUGLUTIDE
     Indication: SHORT-BOWEL SYNDROME
     Dosage: 2.1 MILLIGRAM (DAILY DOSE: 0.05 MILLIGRAM/KILOGRAM), 1X/WEEK
     Route: 065
     Dates: start: 20141014
  12. TEDUGLUTIDE [Suspect]
     Active Substance: TEDUGLUTIDE
     Dosage: 2.1 MILLIGRAM (DAILY DOSE: 0.05 MILLIGRAM/KILOGRAM), QD
     Route: 065
     Dates: start: 20201002

REACTIONS (4)
  - Dysphagia [Recovered/Resolved]
  - Hypotension [Recovered/Resolved]
  - Tachycardia [Recovered/Resolved]
  - Angioedema [Recovered/Resolved]

NARRATIVE: CASE EVENT DATE: 20191119
